FAERS Safety Report 5718390-6 (Version None)
Quarter: 2008Q2

REPORT INFORMATION
  Report Type: 
  Country: None (occurrence: None)
  Receive Date: 20080425
  Receipt Date: 20070809
  Transmission Date: 20081010
  Serious: No
  Sender: FDA-Public Use
  Company Number: A0669200A

PATIENT
  Sex: Female

DRUGS (1)
  1. DEXTROAMPHETAMINE [Suspect]
     Indication: DEPRESSION
     Dosage: 2.5MG UNKNOWN
     Route: 065

REACTIONS (3)
  - DEPRESSION [None]
  - DRUG INEFFECTIVE [None]
  - THERAPEUTIC RESPONSE UNEXPECTED WITH DRUG SUBSTITUTION [None]
